FAERS Safety Report 12497314 (Version 2)
Quarter: 2016Q3

REPORT INFORMATION
  Report Type: Spontaneous
  Country: US (occurrence: US)
  Receive Date: 20160624
  Receipt Date: 20160913
  Transmission Date: 20161109
  Serious: Yes (Hospitalization)
  Sender: FDA-Public Use
  Company Number: US-PFIZER INC-2016309834

PATIENT
  Age: 56 Year
  Sex: Male
  Weight: 122.47 kg

DRUGS (5)
  1. LOVENOX [Concomitant]
     Active Substance: ENOXAPARIN SODIUM
     Indication: THROMBOSIS
     Dosage: 2 INJECTIONS PER DAY, ONE IN THE MORNING AND ONE AT NIGHT
     Dates: start: 20141222, end: 20150105
  2. DILANTIN [Suspect]
     Active Substance: PHENYTOIN
     Dosage: 500 MG A DAY - 300 AM/200 PM
  3. COUMADIN [Concomitant]
     Active Substance: WARFARIN SODIUM
     Indication: THROMBOSIS
     Dosage: 1.5 TO 2 TABLETS OR 7.5 MG OR 10 MG PER DAY, DAILY
     Route: 048
     Dates: start: 201501, end: 201505
  4. COUMADIN [Concomitant]
     Active Substance: WARFARIN SODIUM
     Dosage: UNK
     Dates: start: 20141222, end: 20160616
  5. DILANTIN [Suspect]
     Active Substance: PHENYTOIN
     Indication: SEIZURE
     Dosage: 300 MG, 2X/DAY (100 MG 3 IN THE MORNING, 3 AT NIGHT)
     Dates: start: 199510

REACTIONS (4)
  - Peripheral swelling [Recovered/Resolved]
  - Thrombosis [Recovered/Resolved]
  - Anticonvulsant drug level increased [Recovered/Resolved]
  - Deep vein thrombosis [Recovered/Resolved]

NARRATIVE: CASE EVENT DATE: 201405
